FAERS Safety Report 12977286 (Version 1)
Quarter: 2016Q4

REPORT INFORMATION
  Report Type: Spontaneous
  Country: US (occurrence: US)
  Receive Date: 20161128
  Receipt Date: 20161128
  Transmission Date: 20170207
  Serious: No
  Sender: FDA-Public Use
  Company Number: US-ASTRAZENECA-2016SF22601

PATIENT
  Age: 40 Week
  Sex: Male
  Weight: 7.8 kg

DRUGS (1)
  1. SYNAGIS [Suspect]
     Active Substance: PALIVIZUMAB
     Indication: ANTIVIRAL PROPHYLAXIS
     Dosage: 15 MG /KG, 1.6 ML IN DIVIDED DOSE, ONE DOSE IN EACH THIGH MONTHLY
     Route: 065
     Dates: start: 20161111

REACTIONS (6)
  - Dyspnoea [Unknown]
  - Cold sweat [Unknown]
  - Rash [Recovered/Resolved]
  - Cough [Unknown]
  - Fatigue [Unknown]
  - Rash [Unknown]

NARRATIVE: CASE EVENT DATE: 20161111
